FAERS Safety Report 7422734-7 (Version None)
Quarter: 2011Q2

REPORT INFORMATION
  Report Type: 
  Country: None (occurrence: None)
  Receive Date: 20110419
  Receipt Date: 20110406
  Transmission Date: 20111010
  Serious: Yes (Other)
  Sender: FDA-Public Use
  Company Number: GB-JNJFOC-2007326902

PATIENT
  Age: 29 Year
  Sex: Female

DRUGS (2)
  1. NICOTINE [Suspect]
     Route: 062
  2. NICOTINE [Suspect]
     Indication: DRUG WITHDRAWAL MAINTENANCE THERAPY
     Dosage: DAILY DOSE TEXT: UNSPECIFIED
     Route: 062

REACTIONS (1)
  - CEREBRAL HAEMORRHAGE [None]
